FAERS Safety Report 16330001 (Version 1)
Quarter: 2019Q2

REPORT INFORMATION
  Report Type: Report from Study
  Country: US (occurrence: US)
  Receive Date: 20190520
  Receipt Date: 20190520
  Transmission Date: 20190711
  Serious: Yes (Other)
  Sender: FDA-Public Use
  Company Number: US-ROCHE-2321517

PATIENT

DRUGS (2)
  1. OSELTAMIVIR [Suspect]
     Active Substance: OSELTAMIVIR
     Indication: INFLUENZA
     Route: 048
  2. DANIRIXIN [Suspect]
     Active Substance: DANIRIXIN
     Indication: INFLUENZA
     Route: 042

REACTIONS (1)
  - Clostridium difficile infection [Unknown]
